FAERS Safety Report 9592540 (Version 1)
Quarter: 2013Q4

REPORT INFORMATION
  Report Type: Report from Study
  Country: CA (occurrence: CA)
  Receive Date: 20131004
  Receipt Date: 20131004
  Transmission Date: 20140711
  Serious: Yes (Other)
  Sender: FDA-Public Use
  Company Number: CA-JNJFOC-20130917792

PATIENT
  Age: 46 Year
  Sex: Male
  Weight: 85 kg

DRUGS (4)
  1. REMICADE [Suspect]
     Indication: CROHN^S DISEASE
     Route: 042
     Dates: start: 20130705
  2. MEZAVANT [Concomitant]
     Route: 065
  3. PREDNISONE [Concomitant]
     Route: 065
  4. IRON [Concomitant]
     Route: 065

REACTIONS (1)
  - Colectomy total [Unknown]
